FAERS Safety Report 7447026-1 (Version None)
Quarter: 2011Q2

REPORT INFORMATION
  Report Type: 
  Country: None (occurrence: None)
  Receive Date: 20110429
  Receipt Date: 20110425
  Transmission Date: 20111010
  Serious: Yes (Death, Other)
  Sender: FDA-Public Use
  Company Number: JP-AMGEN-JPNCT2011013564

PATIENT
  Age: 52 Year
  Sex: Male
  Weight: 53 kg

DRUGS (15)
  1. DECADRON [Concomitant]
     Indication: PROPHYLAXIS
     Dosage: UNK
     Route: 042
  2. VALGANCICLOVIR [Concomitant]
     Indication: CYTOMEGALOVIRUS CHORIORETINITIS
     Route: 048
     Dates: start: 20091204, end: 20110221
  3. MINOMYCIN [Concomitant]
     Indication: PROPHYLAXIS
     Route: 048
     Dates: start: 20101006, end: 20110106
  4. CALCIUM LEVOFOLINATE [Suspect]
     Indication: COLORECTAL CANCER
     Route: 041
     Dates: start: 20101006, end: 20101201
  5. PANITUMUMAB [Suspect]
     Indication: COLORECTAL CANCER METASTATIC
     Dosage: 6 MG/KG, Q2WK
     Route: 041
     Dates: start: 20101006, end: 20101201
  6. FLUOROURACIL [Suspect]
     Route: 041
     Dates: start: 20101006, end: 20101201
  7. DECADRON [Concomitant]
     Route: 042
     Dates: start: 20091202, end: 20100217
  8. FLUOROURACIL [Suspect]
     Indication: COLORECTAL CANCER
     Route: 040
     Dates: start: 20101006, end: 20101201
  9. ACUATIM LOTION [Concomitant]
     Dosage: UNK
     Route: 062
  10. AMOBAN [Concomitant]
     Indication: INSOMNIA
     Route: 048
     Dates: start: 20091202, end: 20110221
  11. OXALIPLATIN [Suspect]
     Indication: COLORECTAL CANCER
     Route: 041
     Dates: start: 20101006, end: 20101201
  12. CORTICOSTEROIDS [Concomitant]
     Indication: PROPHYLAXIS
     Dosage: UNK
  13. KYTRIL [Concomitant]
     Indication: PROPHYLAXIS
     Route: 042
     Dates: start: 20091202, end: 20100217
  14. HIRUDOID [Concomitant]
     Dosage: UNK
     Route: 062
  15. GOSHAJINKIGAN [Concomitant]
     Indication: HYPOAESTHESIA
     Route: 048
     Dates: start: 20100203, end: 20110106

REACTIONS (7)
  - THROMBOCYTOPENIA [None]
  - STOMATITIS [None]
  - HEPATIC FUNCTION ABNORMAL [None]
  - BONE MARROW FAILURE [None]
  - DRY SKIN [None]
  - BLOOD MAGNESIUM DECREASED [None]
  - HAEMATURIA [None]
